FAERS Safety Report 13080865 (Version 1)
Quarter: 2017Q1

REPORT INFORMATION
  Report Type: Spontaneous
  Country: TW (occurrence: TW)
  Receive Date: 20170103
  Receipt Date: 20170103
  Transmission Date: 20170428
  Serious: Yes (Death, Other)
  Sender: FDA-Public Use
  Company Number: PHHY2016TW180479

PATIENT
  Age: 13 Year
  Sex: Female

DRUGS (6)
  1. GRANULOCYTE STIMULATING FACTORS [Concomitant]
     Active Substance: GRANULOCYTE COLONY-STIMULATING FACTOR NOS
     Indication: ASPERGILLUS INFECTION
     Route: 065
  2. VORICONAZOLE. [Concomitant]
     Active Substance: VORICONAZOLE
     Indication: PRODUCT USED FOR UNKNOWN INDICATION
     Route: 065
  3. IMATINIB [Suspect]
     Active Substance: IMATINIB
     Indication: ACUTE LYMPHOCYTIC LEUKAEMIA
     Route: 065
  4. FLUCONAZOLE. [Concomitant]
     Active Substance: FLUCONAZOLE
     Indication: ANTIFUNGAL PROPHYLAXIS
     Route: 065
  5. COTRIMOXAZOLE [Concomitant]
     Active Substance: SULFAMETHOXAZOLE\TRIMETHOPRIM
     Indication: ANTIFUNGAL PROPHYLAXIS
     Route: 065
  6. AMPHOTERICIN B DEOXYCHOLATE [Concomitant]
     Active Substance: AMPHOTERICIN B
     Indication: FUNGAL INFECTION
     Route: 065

REACTIONS (6)
  - Coagulopathy [Fatal]
  - Pancytopenia [Unknown]
  - Gastrointestinal haemorrhage [Fatal]
  - Haemorrhage intracranial [Fatal]
  - Acute lymphocytic leukaemia recurrent [Unknown]
  - Septic shock [Unknown]
